FAERS Safety Report 8282604-1 (Version None)
Quarter: 2012Q2

REPORT INFORMATION
  Report Type: 
  Country: None (occurrence: None)
  Receive Date: 20120413
  Receipt Date: 20120405
  Transmission Date: 20120825
  Serious: Yes (Other)
  Sender: FDA-Public Use
  Company Number: DE-ABBOTT-12P-062-0923796-00

PATIENT
  Age: 33 Year
  Sex: Female

DRUGS (4)
  1. DUPHASTON [Suspect]
     Indication: AMENORRHOEA
     Dates: start: 20110501, end: 20110501
  2. HAEMOPROTECT [Concomitant]
     Indication: ANAEMIA
  3. MAGNESIUM [Concomitant]
     Indication: PREMATURE LABOUR
  4. MAGNESIUM [Concomitant]
     Indication: LABOUR PAIN

REACTIONS (6)
  - UTERINE RUPTURE [None]
  - PREGNANCY [None]
  - UNEVALUABLE EVENT [None]
  - MATERNAL EXPOSURE BEFORE PREGNANCY [None]
  - CAESAREAN SECTION [None]
  - PREMATURE LABOUR [None]
